FAERS Safety Report 8481369-8 (Version None)
Quarter: 2012Q2

REPORT INFORMATION
  Report Type: 
  Country: None (occurrence: None)
  Receive Date: 20120626
  Receipt Date: 20120626
  Transmission Date: 20120825
  Serious: No
  Sender: FDA-Public Use
  Company Number: None

PATIENT
  Age: 57 Year
  Sex: Male
  Weight: 127.8 kg

DRUGS (1)
  1. GLIPIZIDE [Suspect]
     Indication: DIABETES MELLITUS
     Dosage: 2.5 MG EVERY DAY PO
     Route: 048
     Dates: start: 20111210, end: 20111211

REACTIONS (2)
  - NO THERAPEUTIC RESPONSE [None]
  - ANGIOEDEMA [None]
